FAERS Safety Report 9773262 (Version 1)
Quarter: 2013Q4

REPORT INFORMATION
  Report Type: Spontaneous
  Country: FR (occurrence: FR)
  Receive Date: 20131219
  Receipt Date: 20131219
  Transmission Date: 20140711
  Serious: Yes (Death, Hospitalization, Disabling)
  Sender: FDA-Public Use
  Company Number: FR-GLAXOSMITHKLINE-B0952227A

PATIENT
  Age: 64 Year
  Sex: Male

DRUGS (17)
  1. AZANTAC [Suspect]
     Indication: CHEMOTHERAPY
     Dosage: 50MG SINGLE DOSE
     Route: 042
     Dates: start: 20131004, end: 20131004
  2. CARBOPLATINE [Suspect]
     Indication: CHEMOTHERAPY
     Dosage: 600MG SINGLE DOSE
     Route: 042
     Dates: start: 20131004, end: 20131004
  3. PACLITAXEL [Suspect]
     Indication: CHEMOTHERAPY
     Dosage: 300MG SINGLE DOSE
     Route: 042
     Dates: start: 20131004, end: 20131004
  4. KYTRIL [Suspect]
     Indication: CHEMOTHERAPY
     Dosage: 2MG SINGLE DOSE
     Route: 048
     Dates: start: 20131004, end: 20131004
  5. SOLUMEDROL [Suspect]
     Indication: CHEMOTHERAPY
     Dosage: 80MG SINGLE DOSE
     Route: 042
     Dates: start: 20131004, end: 20131004
  6. POLARAMINE [Suspect]
     Indication: CHEMOTHERAPY
     Dosage: 5MG SINGLE DOSE
     Route: 058
     Dates: start: 20131004, end: 20131004
  7. EMEND [Suspect]
     Indication: CHEMOTHERAPY
     Route: 048
     Dates: start: 20131004, end: 20131007
  8. ALDACTONE [Concomitant]
     Dosage: 50MG PER DAY
     Route: 048
  9. LAROXYL [Concomitant]
     Dosage: 75MG PER DAY
     Route: 048
  10. XANAX [Concomitant]
     Dosage: .25MG THREE TIMES PER DAY
     Route: 048
  11. OGAST [Concomitant]
     Dosage: 30MG PER DAY
     Route: 048
  12. ZOPHREN [Concomitant]
     Route: 065
     Dates: start: 20131004
  13. PRIMPERAN [Concomitant]
     Dates: start: 20131004
  14. SOLUPRED [Concomitant]
     Dosage: 40MG PER DAY
     Dates: start: 20131004
  15. ONBREZ [Concomitant]
  16. BRONCHODUAL [Concomitant]
  17. BUDESONIDE [Concomitant]

REACTIONS (6)
  - Ischaemic stroke [Fatal]
  - Hyponatraemia [Unknown]
  - Hemiparesis [Unknown]
  - General physical health deterioration [Unknown]
  - Motor dysfunction [Unknown]
  - Facial asymmetry [Unknown]
